FAERS Safety Report 8456245-7 (Version None)
Quarter: 2012Q2

REPORT INFORMATION
  Report Type: 
  Country: None (occurrence: None)
  Receive Date: 20120621
  Receipt Date: 20120608
  Transmission Date: 20120825
  Serious: Yes (Life-Threatening, Hospitalization, Disabling)
  Sender: FDA-Public Use
  Company Number: JP-ROCHE-1069449

PATIENT
  Age: 73 Year
  Sex: Female
  Weight: 43 kg

DRUGS (1)
  1. ROCEPHIN [Suspect]
     Indication: PNEUMONIA
     Route: 041
     Dates: start: 20120428, end: 20120428

REACTIONS (2)
  - RESPIRATORY ARREST [None]
  - ANAPHYLACTIC SHOCK [None]
